FAERS Safety Report 16971381 (Version 2)
Quarter: 2019Q4

REPORT INFORMATION
  Report Type: Spontaneous
  Country: AR (occurrence: AR)
  Receive Date: 20191029
  Receipt Date: 20191126
  Transmission Date: 20200122
  Serious: Yes (Hospitalization, Other)
  Sender: FDA-Public Use
  Company Number: AR-JNJFOC-20191028220

PATIENT
  Age: 79 Year

DRUGS (2)
  1. SIMPONI [Suspect]
     Active Substance: GOLIMUMAB
     Indication: RHEUMATOID ARTHRITIS
     Route: 058
  2. TOCILIZUMAB. [Suspect]
     Active Substance: TOCILIZUMAB
     Route: 058

REACTIONS (3)
  - Tongue necrosis [Recovering/Resolving]
  - Drug ineffective [Unknown]
  - Cellulitis [Unknown]
